FAERS Safety Report 10951502 (Version 4)
Quarter: 2015Q4

REPORT INFORMATION
  Report Type: Report from Study
  Country: BR (occurrence: BR)
  Receive Date: 20150324
  Receipt Date: 20151209
  Transmission Date: 20160304
  Serious: Yes (Death, Hospitalization, Other)
  Sender: FDA-Public Use
  Company Number: PHHY2015BR021366

PATIENT
  Age: 51 Year
  Sex: Male
  Weight: 73 kg

DRUGS (2)
  1. SANDOSTATIN LAR DEPOT [Suspect]
     Active Substance: OCTREOTIDE ACETATE
     Indication: NEUROENDOCRINE TUMOUR
     Dosage: 20 MG (1 AMPOULE), QMO
     Route: 030
     Dates: start: 201403
  2. SANDOSTATIN LAR DEPOT [Suspect]
     Active Substance: OCTREOTIDE ACETATE
     Dosage: 30 MG, (1 AMPOULE) QMO
     Route: 030

REACTIONS (31)
  - Multi-organ failure [Unknown]
  - Oedema [Unknown]
  - Pain in extremity [Unknown]
  - Injection site pain [Not Recovered/Not Resolved]
  - Paraesthesia [Not Recovered/Not Resolved]
  - Feeling abnormal [Not Recovered/Not Resolved]
  - Weight decreased [Not Recovered/Not Resolved]
  - General physical health deterioration [Not Recovered/Not Resolved]
  - Malaise [Recovered/Resolved]
  - Asthenia [Not Recovered/Not Resolved]
  - Somnolence [Not Recovered/Not Resolved]
  - Anuria [Unknown]
  - Back pain [Not Recovered/Not Resolved]
  - Headache [Not Recovered/Not Resolved]
  - Visual impairment [Not Recovered/Not Resolved]
  - Depression [Not Recovered/Not Resolved]
  - Arthralgia [Not Recovered/Not Resolved]
  - Metabolic disorder [Not Recovered/Not Resolved]
  - Apathy [Not Recovered/Not Resolved]
  - Myalgia [Not Recovered/Not Resolved]
  - Generalised oedema [Unknown]
  - Ascites [Unknown]
  - Dizziness [Not Recovered/Not Resolved]
  - Pain [Not Recovered/Not Resolved]
  - Peripheral swelling [Unknown]
  - Diabetes mellitus [Not Recovered/Not Resolved]
  - Hyperglycaemia [Not Recovered/Not Resolved]
  - Pulmonary oedema [Unknown]
  - Renal impairment [Unknown]
  - Myocardial infarction [Fatal]
  - Respiratory failure [Unknown]

NARRATIVE: CASE EVENT DATE: 201404
